FAERS Safety Report 13285957 (Version 1)
Quarter: 2017Q1

REPORT INFORMATION
  Report Type: Spontaneous
  Country: US (occurrence: US)
  Receive Date: 20170302
  Receipt Date: 20170302
  Transmission Date: 20170428
  Serious: Yes (Death)
  Sender: FDA-Public Use
  Company Number: None

PATIENT
  Age: 62 Year
  Sex: Male

DRUGS (11)
  1. LEVOTHYROXIN [Concomitant]
     Active Substance: LEVOTHYROXINE
  2. LACTULOSE. [Concomitant]
     Active Substance: LACTULOSE
  3. FOSINOPRIL [Concomitant]
     Active Substance: FOSINOPRIL
  4. MORPHINE [Concomitant]
     Active Substance: MORPHINE
  5. SUCRALATE [Concomitant]
  6. URSODOL [Concomitant]
  7. HYDROCHLOROT [Concomitant]
     Active Substance: HYDROCHLOROTHIAZIDE
  8. FUROSEMIDE. [Concomitant]
     Active Substance: FUROSEMIDE
  9. LONSURF [Suspect]
     Active Substance: TIPIRACIL HYDROCHLORIDE\TRIFLURIDINE
     Indication: GASTROINTESTINAL CARCINOMA
     Route: 048
     Dates: start: 20170117
  10. SPIRONOLACT [Concomitant]
  11. HYDROCO/APAP [Concomitant]
     Active Substance: ACETAMINOPHEN\HYDROCODONE

REACTIONS (1)
  - Death [None]

NARRATIVE: CASE EVENT DATE: 20170301
